FAERS Safety Report 14591502 (Version 1)
Quarter: 2018Q1

REPORT INFORMATION
  Report Type: Spontaneous
  Country: US (occurrence: US)
  Receive Date: 20180301
  Receipt Date: 20180301
  Transmission Date: 20180509
  Serious: No
  Sender: FDA-Public Use
  Company Number: None

PATIENT
  Age: 62 Year
  Sex: Female
  Weight: 60 kg

DRUGS (1)
  1. DAPTOMYCIN. [Suspect]
     Active Substance: DAPTOMYCIN
     Indication: OSTEOMYELITIS
     Dosage: 360MG Q24H IV PUSH
     Route: 042
     Dates: start: 20180112, end: 20180213

REACTIONS (2)
  - Nasopharyngitis [None]
  - Blood pressure increased [None]

NARRATIVE: CASE EVENT DATE: 20180203
